FAERS Safety Report 12079278 (Version 1)
Quarter: 2016Q1

REPORT INFORMATION
  Report Type: Spontaneous
  Country: ES (occurrence: ES)
  Receive Date: 20160216
  Receipt Date: 20160216
  Transmission Date: 20160526
  Serious: Yes (Hospitalization)
  Sender: FDA-Public Use
  Company Number: ES-SUNOVION-2016SUN000334

PATIENT

DRUGS (6)
  1. TEMOZOLOMIDE. [Suspect]
     Active Substance: TEMOZOLOMIDE
     Indication: GLIOBLASTOMA
     Dosage: UNK, UNKNOWN
     Route: 065
     Dates: start: 20150824, end: 20151005
  2. TEMOZOLOMIDE. [Suspect]
     Active Substance: TEMOZOLOMIDE
     Dosage: UNK, UNKNOWN
     Route: 065
     Dates: start: 20151123, end: 20151127
  3. ZEBINIX [Suspect]
     Active Substance: ESLICARBAZEPINE ACETATE
     Indication: PRODUCT USED FOR UNKNOWN INDICATION
     Dosage: 400 MG, QD
     Route: 048
     Dates: start: 20150821, end: 2015
  4. ZEBINIX [Suspect]
     Active Substance: ESLICARBAZEPINE ACETATE
     Dosage: 800 MG, QD
     Route: 048
     Dates: start: 201509, end: 2015
  5. ZEBINIX [Suspect]
     Active Substance: ESLICARBAZEPINE ACETATE
     Dosage: 400 MG, QD
     Route: 048
     Dates: start: 20151204, end: 20151207
  6. ZEBINIX [Suspect]
     Active Substance: ESLICARBAZEPINE ACETATE
     Dosage: 400 MG, BID
     Route: 048
     Dates: start: 20151201, end: 201512

REACTIONS (2)
  - Drug reaction with eosinophilia and systemic symptoms [Recovered/Resolved]
  - Inappropriate schedule of drug administration [Unknown]

NARRATIVE: CASE EVENT DATE: 20151014
